FAERS Safety Report 4482531-1 (Version None)
Quarter: 2004Q4

REPORT INFORMATION
  Report Type: 
  Country: None (occurrence: None)
  Receive Date: 20041022
  Receipt Date: 20040826
  Transmission Date: 20050328
  Serious: Yes (Other)
  Sender: FDA-Public Use
  Company Number: DE-BRISTOL-MYERS SQUIBB COMPANY-12685210

PATIENT
  Sex: Female

DRUGS (2)
  1. KARVEZIDE TABS 150MG/12.5MG [Suspect]
     Indication: HYPERTENSION
     Dosage: DOSEAGE FORM=150 MG / 12.5 MG
     Route: 048
     Dates: start: 20020101
  2. L-THYROXINE [Concomitant]
     Indication: GOITRE
     Route: 048
     Dates: start: 20020101

REACTIONS (2)
  - HEPATOCELLULAR DAMAGE [None]
  - TRANSAMINASES INCREASED [None]
